FAERS Safety Report 4394417-1 (Version None)
Quarter: 2004Q3

REPORT INFORMATION
  Report Type: 
  Country: None (occurrence: None)
  Receive Date: 20040706
  Receipt Date: 20040623
  Transmission Date: 20050211
  Serious: Yes (Other)
  Sender: FDA-Public Use
  Company Number: 2004036475

PATIENT
  Sex: Male

DRUGS (11)
  1. VIAGRA [Suspect]
     Indication: ERECTILE DYSFUNCTION
     Dosage: 100 MG (AS NEEDED), ORAL
     Route: 048
  2. TEMAZEPAM [Concomitant]
  3. ESOMEPRAZOLE (ESOMEPRAZOLE) [Concomitant]
  4. PSEUDOEPHEDRINE HCL [Concomitant]
  5. TAMSULOSIN (TAMSULOSIN) [Concomitant]
  6. ATENOLOL [Concomitant]
  7. VICODIN [Concomitant]
  8. TESTOSTERONE [Concomitant]
  9. CENTRUM (MINERAL NOS, VITAMINS NOS) [Concomitant]
  10. CALCIUM (CALCIUM) [Concomitant]
  11. ALL OTHER THERAPEUTIC PRODUCTS (ALL OTHER THERAPEUTIC PRODUCTS) [Concomitant]

REACTIONS (8)
  - CYANOPSIA [None]
  - DRUG INEFFECTIVE [None]
  - KNEE ARTHROPLASTY [None]
  - NASAL CONGESTION [None]
  - RASH [None]
  - RENAL CELL CARCINOMA STAGE UNSPECIFIED [None]
  - VISION BLURRED [None]
  - WEIGHT DECREASED [None]
